FAERS Safety Report 4995147-5 (Version None)
Quarter: 2006Q2

REPORT INFORMATION
  Report Type: 
  Country: None (occurrence: None)
  Receive Date: 20060508
  Receipt Date: 20060406
  Transmission Date: 20061013
  Serious: Yes (Hospitalization)
  Sender: FDA-Public Use
  Company Number: CA-MERCK-0604CAN00020

PATIENT
  Age: 56 Year
  Sex: Female
  Weight: 83 kg

DRUGS (8)
  1. INVANZ [Suspect]
     Indication: CHOLECYSTITIS
     Route: 042
  2. AMOXICILLIN AND CLAVULANATE POTASSIUM [Suspect]
     Indication: SINUSITIS
     Route: 048
  3. HYDROXYZINE HYDROCHLORIDE [Concomitant]
     Indication: PRURITUS
     Route: 048
  4. ACETAMINOPHEN [Concomitant]
     Indication: PAIN
     Route: 065
  5. ACETAMINOPHEN [Concomitant]
     Indication: PYREXIA
     Route: 065
  6. CODEINE [Concomitant]
     Route: 065
  7. DIMENHYDRINATE [Concomitant]
     Indication: NAUSEA
     Route: 065
  8. OXAZEPAM [Concomitant]
     Indication: INSOMNIA
     Route: 065

REACTIONS (4)
  - BACTERIAL INFECTION [None]
  - BILE CULTURE POSITIVE [None]
  - LEUKOCYTOCLASTIC VASCULITIS [None]
  - PURPURA [None]
